FAERS Safety Report 8156425-4 (Version None)
Quarter: 2012Q1

REPORT INFORMATION
  Report Type: 
  Country: None (occurrence: None)
  Receive Date: 20120222
  Receipt Date: 20120215
  Transmission Date: 20120608
  Serious: Yes (Death, Hospitalization, Other)
  Sender: FDA-Public Use
  Company Number: US-CELGENEUS-163-21880-12021828

PATIENT
  Age: 59 Year
  Sex: Female

DRUGS (5)
  1. LORAZEPAM [Concomitant]
     Route: 065
  2. VELCADE [Concomitant]
     Indication: MULTIPLE MYELOMA
     Route: 065
     Dates: start: 20110601, end: 20110901
  3. LEVOTHYROXINE SODIUM [Concomitant]
     Route: 065
  4. REVLIMID [Suspect]
     Indication: MULTIPLE MYELOMA
     Dosage: 25 MILLIGRAM
     Route: 048
     Dates: start: 20110601, end: 20110901
  5. DEXAMETHASONE [Concomitant]
     Indication: MULTIPLE MYELOMA
     Route: 065
     Dates: start: 20110601, end: 20110901

REACTIONS (6)
  - CEREBRAL HAEMORRHAGE [None]
  - THROMBOCYTOPENIA [None]
  - RESPIRATORY FAILURE [None]
  - ANAEMIA [None]
  - DEATH [None]
  - FAILURE TO THRIVE [None]
